FAERS Safety Report 7541046-4 (Version None)
Quarter: 2011Q2

REPORT INFORMATION
  Report Type: 
  Country: None (occurrence: None)
  Receive Date: 20110610
  Receipt Date: 20101217
  Transmission Date: 20111010
  Serious: No
  Sender: FDA-Public Use
  Company Number: A0900370A

PATIENT

DRUGS (2)
  1. ALTABAX [Suspect]
     Route: 065
  2. UNKNOWN [Concomitant]

REACTIONS (1)
  - DERMATITIS CONTACT [None]
